FAERS Safety Report 24572263 (Version 3)
Quarter: 2025Q1

REPORT INFORMATION
  Report Type: Spontaneous
  Country: US (occurrence: US)
  Receive Date: 20241101
  Receipt Date: 20250224
  Transmission Date: 20250409
  Serious: Yes (Other)
  Sender: PFIZER
  Company Number: US-PFIZER INC-202400290069

PATIENT
  Age: 67 Year
  Sex: Female
  Weight: 106.12 kg

DRUGS (17)
  1. IBRANCE [Suspect]
     Active Substance: PALBOCICLIB
     Indication: Breast cancer female
     Route: 048
     Dates: start: 20231208
  2. IBRANCE [Suspect]
     Active Substance: PALBOCICLIB
     Route: 048
  3. ALBUTEROL SULFATE [Concomitant]
     Active Substance: ALBUTEROL SULFATE
  4. WEGOVY [Concomitant]
     Active Substance: SEMAGLUTIDE
     Indication: Weight decreased
  5. POTASSIUM [Concomitant]
     Active Substance: POTASSIUM
  6. ANASTROZOLE [Concomitant]
     Active Substance: ANASTROZOLE
  7. METFORMIN HYDROCHLORIDE [Concomitant]
     Active Substance: METFORMIN HYDROCHLORIDE
  8. AMLODIPINE [Concomitant]
     Active Substance: AMLODIPINE BESYLATE
  9. LOSARTAN [Concomitant]
     Active Substance: LOSARTAN
  10. OXYCONTIN [Concomitant]
     Active Substance: OXYCODONE HYDROCHLORIDE
  11. MAGNESIUM [Concomitant]
     Active Substance: MAGNESIUM
  12. IRON [Concomitant]
     Active Substance: IRON
  13. LEVOTHYROXINE [Concomitant]
     Active Substance: LEVOTHYROXINE
  14. TYLENOL [Concomitant]
     Active Substance: ACETAMINOPHEN
  15. ONDANSETRON [Concomitant]
     Active Substance: ONDANSETRON
  16. CETIRIZINE [Concomitant]
     Active Substance: CETIRIZINE HYDROCHLORIDE
  17. LINZESS [Concomitant]
     Active Substance: LINACLOTIDE

REACTIONS (13)
  - Neuropathy peripheral [Not Recovered/Not Resolved]
  - Gallbladder operation [Unknown]
  - Infection [Recovering/Resolving]
  - Cough [Not Recovered/Not Resolved]
  - Nasal congestion [Not Recovered/Not Resolved]
  - Chest pain [Not Recovered/Not Resolved]
  - Oropharyngeal pain [Not Recovered/Not Resolved]
  - Aphonia [Not Recovered/Not Resolved]
  - Headache [Not Recovered/Not Resolved]
  - Muscle spasms [Not Recovered/Not Resolved]
  - Muscle disorder [Unknown]
  - Pain [Not Recovered/Not Resolved]
  - Diarrhoea [Recovered/Resolved with Sequelae]

NARRATIVE: CASE EVENT DATE: 20241025
